FAERS Safety Report 7958636-7 (Version None)
Quarter: 2011Q4

REPORT INFORMATION
  Report Type: 
  Country: None (occurrence: None)
  Receive Date: 20111206
  Receipt Date: 20111201
  Transmission Date: 20120403
  Serious: No
  Sender: FDA-Public Use
  Company Number: US-BIOGENIDEC-2011BI045723

PATIENT
  Sex: Female

DRUGS (2)
  1. TYSABRI [Suspect]
     Indication: MULTIPLE SCLEROSIS
     Route: 042
     Dates: start: 20101025, end: 20110906
  2. TYSABRI [Suspect]
     Route: 042
     Dates: start: 20050118

REACTIONS (3)
  - DRUG SPECIFIC ANTIBODY PRESENT [None]
  - FLUSHING [None]
  - INFLUENZA LIKE ILLNESS [None]
